FAERS Safety Report 17812919 (Version 1)
Quarter: 2020Q2

REPORT INFORMATION
  Report Type: Spontaneous
  Country: CA (occurrence: CA)
  Receive Date: 20200521
  Receipt Date: 20200521
  Transmission Date: 20200714
  Serious: Yes (Other)
  Sender: FDA-Public Use
  Company Number: CA-TEVA-2020-CA-1237094

PATIENT
  Age: 15 Year
  Sex: Male

DRUGS (5)
  1. CLONIDINE. [Suspect]
     Active Substance: CLONIDINE
     Indication: BEHAVIOUR DISORDER
     Dosage: .2 MILLIGRAM DAILY;
  2. LAMOTRIGINE. [Suspect]
     Active Substance: LAMOTRIGINE
     Indication: BEHAVIOUR DISORDER
     Dosage: 50 MILLIGRAM DAILY;
  3. OLANZAPINE. [Suspect]
     Active Substance: OLANZAPINE
     Indication: BEHAVIOUR DISORDER
     Dosage: 20 MILLIGRAM DAILY;
  4. SERTRALINE [Suspect]
     Active Substance: SERTRALINE HYDROCHLORIDE
     Indication: BEHAVIOUR DISORDER
  5. QUETIAPINE. [Suspect]
     Active Substance: QUETIAPINE
     Indication: BEHAVIOUR DISORDER

REACTIONS (1)
  - Overweight [Unknown]
